FAERS Safety Report 9613117 (Version 1)
Quarter: 2013Q4

REPORT INFORMATION
  Report Type: Report from Study
  Country: NL (occurrence: NL)
  Receive Date: 20131010
  Receipt Date: 20131010
  Transmission Date: 20140711
  Serious: Yes (Death, Hospitalization)
  Sender: FDA-Public Use
  Company Number: NL-JNJFOC-20131002640

PATIENT
  Age: 7 Decade
  Sex: Male

DRUGS (4)
  1. ABIRATERONE ACETATE [Suspect]
     Indication: PROSTATE CANCER
     Route: 048
     Dates: start: 20120501, end: 20120717
  2. PREDNISOLONE [Concomitant]
  3. PRIMPERAN [Concomitant]
  4. PARACETAMOL [Concomitant]

REACTIONS (4)
  - Death [Fatal]
  - Pleural effusion [Unknown]
  - Pleural effusion [Unknown]
  - Pleural effusion [Unknown]
